FAERS Safety Report 12931374 (Version 1)
Quarter: 2016Q4

REPORT INFORMATION
  Report Type: Spontaneous
  Country: BR (occurrence: BR)
  Receive Date: 20161110
  Receipt Date: 20161110
  Transmission Date: 20170207
  Serious: Yes (Other)
  Sender: FDA-Public Use
  Company Number: BR-PFIZER INC-2016518627

PATIENT
  Age: 24 Year
  Sex: Female

DRUGS (3)
  1. NEOZINE /00038601/ [Concomitant]
     Indication: LIVER DISORDER
     Dosage: 1 TABLET DAILY
     Route: 048
  2. GEODON [Suspect]
     Active Substance: ZIPRASIDONE HYDROCHLORIDE\ZIPRASIDONE MESYLATE
     Indication: DEPRESSION
     Dosage: 80 MG, 2X/DAY
     Route: 048
  3. RIVOTRIL [Concomitant]
     Active Substance: CLONAZEPAM
     Indication: DEPRESSION
     Dosage: 8 DROPS DAILY
     Route: 048

REACTIONS (6)
  - Intentional self-injury [Unknown]
  - Mental disorder [Unknown]
  - Drug withdrawal syndrome [Unknown]
  - Insomnia [Unknown]
  - Terminal insomnia [Unknown]
  - Aggression [Unknown]
